FAERS Safety Report 15419802 (Version 2)
Quarter: 2021Q2

REPORT INFORMATION
  Report Type: Spontaneous
  Country: DE (occurrence: DE)
  Receive Date: 20180924
  Receipt Date: 20210607
  Transmission Date: 20210716
  Serious: Yes (Hospitalization, Other)
  Sender: FDA-Public Use
  Company Number: PHHY2018DE090992

PATIENT
  Age: 66 Year
  Sex: Male
  Weight: 70 kg

DRUGS (14)
  1. FLUOROURACIL. [Suspect]
     Active Substance: FLUOROURACIL
     Dosage: 700 MG
     Route: 040
     Dates: start: 20180703
  2. FLUOROURACIL. [Suspect]
     Active Substance: FLUOROURACIL
     Dosage: 600 MG
     Route: 040
     Dates: start: 20181001
  3. FOLINIC ACID [Suspect]
     Active Substance: LEUCOVORIN
     Indication: COLORECTAL CANCER METASTATIC
     Dosage: 350 MG
     Route: 065
     Dates: start: 20180703
  4. FLUOROURACIL. [Suspect]
     Active Substance: FLUOROURACIL
     Dosage: 300 MG
     Route: 040
     Dates: start: 20181210
  5. OXALIPLATIN. [Suspect]
     Active Substance: OXALIPLATIN
     Indication: COLORECTAL CANCER METASTATIC
     Dosage: 150 MG
     Route: 065
     Dates: start: 20180703
  6. OXALIPLATIN. [Suspect]
     Active Substance: OXALIPLATIN
     Dosage: 130 MG
     Route: 065
     Dates: start: 20190109
  7. VECTIBIX [Suspect]
     Active Substance: PANITUMUMAB
     Dosage: 600 MG
     Route: 042
     Dates: start: 20190110
  8. FLUOROURACIL. [Suspect]
     Active Substance: FLUOROURACIL
     Indication: COLORECTAL CANCER METASTATIC
     Dosage: 1100 MG
     Route: 042
     Dates: start: 20180703
  9. VECTIBIX [Suspect]
     Active Substance: PANITUMUMAB
     Dosage: 300 MG
     Route: 042
     Dates: start: 20181002
  10. RAMIPRIL RATIOPHARM [Concomitant]
     Active Substance: RAMIPRIL
     Indication: HYPERTENSION
     Dosage: 25 MG DAILY
     Route: 065
  11. ACETYLSALICYLSAEURE [Concomitant]
     Active Substance: ASPIRIN
     Indication: PROPHYLAXIS
     Dosage: 100 MG DAILY
     Route: 065
  12. L?THYROXIN HENNING [Concomitant]
     Active Substance: LEVOTHYROXINE SODIUM
     Indication: HYPOTHYROIDISM
     Dosage: 50 UG DAILY
     Route: 065
  13. VECTIBIX [Suspect]
     Active Substance: PANITUMUMAB
     Indication: COLORECTAL CANCER METASTATIC
     Dosage: 420 MG
     Route: 042
     Dates: start: 20180704
  14. FOLINIC ACID [Suspect]
     Active Substance: LEUCOVORIN
     Dosage: 300 MG
     Route: 065
     Dates: start: 20181001

REACTIONS (3)
  - Stomatitis [Recovered/Resolved]
  - Ulcerative gastritis [Recovered/Resolved]
  - Hypokalaemia [Recovered/Resolved]

NARRATIVE: CASE EVENT DATE: 20180813
